FAERS Safety Report 5144380-0 (Version None)
Quarter: 2006Q4

REPORT INFORMATION
  Report Type: 
  Country: None (occurrence: None)
  Receive Date: 20061030
  Receipt Date: 20061016
  Transmission Date: 20070319
  Serious: Yes (Hospitalization)
  Sender: FDA-Public Use
  Company Number: US200610002823

PATIENT
  Age: 77 Year
  Sex: Female

DRUGS (7)
  1. HUMULIN 70/30 [Suspect]
     Indication: DIABETES MELLITUS
  2. HUMULIN 70/30 [Suspect]
     Indication: DIABETES MELLITUS
  3. HUMULIN 70/30 PEN (HUMULIN 70/30 PEN) PEN, DISPOSABLE [Concomitant]
  4. HUMALOG MIX 75/25 [Suspect]
     Dates: start: 20061001
  5. LANTUS [Concomitant]
  6. LORTAB [Concomitant]
  7. VALIUM/NET/(DIAZEPAM) [Concomitant]

REACTIONS (13)
  - BLOOD GLUCOSE DECREASED [None]
  - FEELING COLD [None]
  - FLUSHING [None]
  - HEADACHE [None]
  - HEART RATE INCREASED [None]
  - HYPOTENSION [None]
  - NERVOUSNESS [None]
  - NON-CARDIAC CHEST PAIN [None]
  - OESOPHAGEAL DISORDER [None]
  - PACEMAKER COMPLICATION [None]
  - PHARMACEUTICAL PRODUCT COMPLAINT [None]
  - THROMBOSIS IN DEVICE [None]
  - TINNITUS [None]
